FAERS Safety Report 22022435 (Version 2)
Quarter: 2024Q3

REPORT INFORMATION
  Report Type: Spontaneous
  Country: CN (occurrence: CN)
  Receive Date: 20230222
  Receipt Date: 20240815
  Transmission Date: 20241016
  Serious: Yes (Other)
  Sender: JOHNSON AND JOHNSON
  Company Number: CN-JNJFOC-20230232646

PATIENT
  Age: 56 Year
  Sex: Female

DRUGS (4)
  1. DARZALEX [Suspect]
     Active Substance: DARATUMUMAB
     Indication: Plasma cell myeloma
     Dosage: LAST DOSE WAS ADMINISTERED ON 12-AUG-2022
     Route: 065
     Dates: start: 20220719
  2. VELCADE [Suspect]
     Active Substance: BORTEZOMIB
     Indication: Plasma cell myeloma
     Dosage: DAYS 1, 4, 8 AND 11
     Route: 058
     Dates: start: 20220719
  3. POMALIDOMIDE [Suspect]
     Active Substance: POMALIDOMIDE
     Indication: Plasma cell myeloma
     Dosage: DAYS 1 TO 14
     Route: 048
     Dates: start: 20220719
  4. DEXAMETHASONE [Suspect]
     Active Substance: DEXAMETHASONE
     Indication: Plasma cell myeloma
     Dosage: INTRAVENOUS INJECTION OR ORAL ADMINISTRATION ON DAYS 1, 2, 4, 5, 8, 9, 11 AND 12
     Route: 065
     Dates: start: 20220719

REACTIONS (3)
  - Leukoencephalopathy [Recovered/Resolved]
  - Neutropenia [Unknown]
  - Pyrexia [Unknown]

NARRATIVE: CASE EVENT DATE: 20220805
